FAERS Safety Report 21581796 (Version 2)
Quarter: 2023Q1

REPORT INFORMATION
  Report Type: Spontaneous
  Country: US (occurrence: US)
  Receive Date: 20221111
  Receipt Date: 20230302
  Transmission Date: 20230418
  Serious: No
  Sender: FDA-Public Use
  Company Number: US-BRISTOL-MYERS SQUIBB COMPANY-2022-136057

PATIENT
  Age: 69 Year
  Sex: Male
  Weight: 92.53 kg

DRUGS (1)
  1. POMALYST [Suspect]
     Active Substance: POMALIDOMIDE
     Indication: Plasma cell myeloma
     Dosage: 3W ON 1W OFF
     Route: 048
     Dates: start: 20210701

REACTIONS (3)
  - Joint swelling [Recovering/Resolving]
  - Oedema [Recovering/Resolving]
  - COVID-19 [Unknown]
